FAERS Safety Report 25858787 (Version 1)
Quarter: 2025Q3

REPORT INFORMATION
  Report Type: Spontaneous
  Country: US (occurrence: None)
  Receive Date: 20250926
  Receipt Date: 20250926
  Transmission Date: 20251021
  Serious: Yes (Other)
  Sender: FDA-CTU
  Company Number: None

PATIENT
  Age: 48 Year
  Sex: Female

DRUGS (1)
  1. LORBRENA [Suspect]
     Active Substance: LORLATINIB
     Dosage: OTHER FREQUENCY : 3T DAILY;?
     Route: 048

REACTIONS (3)
  - COVID-19 [None]
  - Weight increased [None]
  - Blood cholesterol increased [None]
